FAERS Safety Report 5848958-8 (Version None)
Quarter: 2008Q3

REPORT INFORMATION
  Report Type: 
  Country: None (occurrence: None)
  Receive Date: 20080819
  Receipt Date: 20080812
  Transmission Date: 20090109
  Serious: Yes (Life-Threatening, Hospitalization)
  Sender: FDA-Public Use
  Company Number: PHBS2008CZ05400

PATIENT

DRUGS (4)
  1. CARBAMAZEPINE [Suspect]
     Dosage: 32 G, ONCE/SINGLE
     Route: 065
  2. FLUCONAZOLE [Suspect]
     Dosage: 240 MG, ONCE/SINGLE
  3. NIMESULIDE [Suspect]
     Dosage: 1 G, ONCE/SINGLE
  4. OLANZAPINE [Suspect]
     Dosage: 100 MG, ONCE/SINGLE

REACTIONS (5)
  - COMA [None]
  - CONVULSION [None]
  - DRUG LEVEL INCREASED [None]
  - INTENTIONAL OVERDOSE [None]
  - SUICIDE ATTEMPT [None]
